FAERS Safety Report 7533168-9 (Version None)
Quarter: 2011Q2

REPORT INFORMATION
  Report Type: 
  Country: None (occurrence: None)
  Receive Date: 20110608
  Receipt Date: 20020827
  Transmission Date: 20111010
  Serious: Yes (Hospitalization)
  Sender: FDA-Public Use
  Company Number: PHBS2002CA10351

PATIENT
  Sex: Male

DRUGS (2)
  1. PANTOLOC ^BYK^ [Concomitant]
     Route: 065
  2. CLOZAPINE [Suspect]
     Indication: SCHIZOPHRENIA
     Route: 048
     Dates: start: 20020711

REACTIONS (1)
  - BARRETT'S OESOPHAGUS [None]
